FAERS Safety Report 12607718 (Version 1)
Quarter: 2016Q3

REPORT INFORMATION
  Report Type: Spontaneous
  Country: US (occurrence: US)
  Receive Date: 20160729
  Receipt Date: 20160729
  Transmission Date: 20161109
  Serious: No
  Sender: FDA-Public Use
  Company Number: US-IGSA-IG003739

PATIENT
  Age: 71 Year
  Sex: Male

DRUGS (2)
  1. IGIV (MANUFACTURER PRODUCT UNKNOWN) [Suspect]
     Active Substance: HUMAN IMMUNOGLOBULIN G
     Indication: POLYMYOSITIS
  2. IGIV (MANUFACTURER PRODUCT UNKNOWN) [Suspect]
     Active Substance: HUMAN IMMUNOGLOBULIN G
     Indication: CHRONIC INFLAMMATORY DEMYELINATING POLYRADICULONEUROPATHY

REACTIONS (1)
  - Rash [Unknown]
